FAERS Safety Report 20196837 (Version 3)
Quarter: 2022Q3

REPORT INFORMATION
  Report Type: Report from Study
  Country: US (occurrence: US)
  Receive Date: 20211217
  Receipt Date: 20220704
  Transmission Date: 20221027
  Serious: No
  Sender: FDA-Public Use
  Company Number: US-JNJFOC-20201212018

PATIENT
  Age: 3 Year
  Sex: Female
  Weight: 13.3 kg

DRUGS (12)
  1. CISAPRIDE [Suspect]
     Active Substance: CISAPRIDE
     Indication: Gastrooesophageal reflux disease
     Route: 065
     Dates: start: 20191204
  2. CISAPRIDE [Suspect]
     Active Substance: CISAPRIDE
     Indication: Gastrointestinal motility disorder
     Route: 065
     Dates: start: 20200409
  3. CISAPRIDE [Suspect]
     Active Substance: CISAPRIDE
     Route: 065
     Dates: start: 20200205
  4. CISAPRIDE [Suspect]
     Active Substance: CISAPRIDE
     Dosage: 1.7 MG
     Route: 065
     Dates: start: 20200619
  5. CISAPRIDE [Suspect]
     Active Substance: CISAPRIDE
     Route: 065
     Dates: start: 20200812
  6. CISAPRIDE [Suspect]
     Active Substance: CISAPRIDE
     Route: 065
     Dates: start: 20201007
  7. CISAPRIDE [Suspect]
     Active Substance: CISAPRIDE
     Route: 065
     Dates: end: 20201203
  8. CHOLECALCIFEROL [Concomitant]
     Active Substance: CHOLECALCIFEROL
     Indication: Nutritional supplementation
     Dosage: 400 UNITS/0.04M
     Route: 065
     Dates: start: 20180524
  9. MAGNESIUM HYDROXIDE [Concomitant]
     Active Substance: MAGNESIUM HYDROXIDE
     Indication: Constipation
     Dosage: 400 MG/5ML
     Route: 065
     Dates: start: 20190418
  10. MELATONIN [Concomitant]
     Active Substance: MELATONIN
     Indication: Sleep disorder therapy
     Route: 048
     Dates: start: 20190214
  11. MIRALAX [Concomitant]
     Active Substance: POLYETHYLENE GLYCOL 3350
     Indication: Constipation
     Dates: start: 20190116
  12. LANSOPRAZOLE [Concomitant]
     Active Substance: LANSOPRAZOLE
     Indication: Gastrooesophageal reflux disease
     Route: 065

REACTIONS (1)
  - Electrocardiogram QRS complex abnormal [Recovered/Resolved]

NARRATIVE: CASE EVENT DATE: 20201202
